FAERS Safety Report 25709199 (Version 2)
Quarter: 2025Q3

REPORT INFORMATION
  Report Type: Report from Study
  Country: EU (occurrence: EU)
  Receive Date: 20250821
  Receipt Date: 20250910
  Transmission Date: 20251020
  Serious: Yes (Death)
  Sender: TEVA
  Company Number: EU-TEVA-VS-3363453

PATIENT

DRUGS (1)
  1. METHOTREXATE [Suspect]
     Active Substance: METHOTREXATE
     Indication: Pemphigoid
     Route: 065

REACTIONS (4)
  - Thrombocytopenia [Fatal]
  - Skin wound [Fatal]
  - Diarrhoea [Fatal]
  - Neutropenia [Fatal]
